FAERS Safety Report 24252426 (Version 2)
Quarter: 2024Q3

REPORT INFORMATION
  Report Type: Spontaneous
  Country: FR (occurrence: FR)
  Receive Date: 20240827
  Receipt Date: 20240926
  Transmission Date: 20241017
  Serious: Yes (Hospitalization)
  Sender: AUROBINDO
  Company Number: FR-AUROBINDO-AUR-APL-2024-041197

PATIENT
  Age: 54 Year
  Sex: Female

DRUGS (1)
  1. IBUPROFEN [Suspect]
     Active Substance: IBUPROFEN
     Indication: Embolia cutis medicamentosa
     Dosage: 400 MILLIGRAM, TWO TIMES A DAY,FOR 2 DAYS
     Route: 065

REACTIONS (1)
  - Drug ineffective [Unknown]
